FAERS Safety Report 4594842-X (Version None)
Quarter: 2005Q1

REPORT INFORMATION
  Report Type: 
  Country: None (occurrence: None)
  Receive Date: 20050224
  Receipt Date: 20030812
  Transmission Date: 20050727
  Serious: Yes (Other)
  Sender: FDA-Public Use
  Company Number: GXKR2003BR00452

PATIENT
  Age: 25 Year
  Sex: Male
  Weight: 62 kg

DRUGS (1)
  1. LORATADINE [Suspect]
     Indication: EYELID IRRITATION

REACTIONS (6)
  - AGITATION [None]
  - CONDITION AGGRAVATED [None]
  - CONFUSIONAL STATE [None]
  - INSOMNIA [None]
  - PSYCHOMOTOR HYPERACTIVITY [None]
  - PSYCHOTIC DISORDER [None]
